FAERS Safety Report 5982505-5 (Version None)
Quarter: 2008Q4

REPORT INFORMATION
  Report Type: 
  Country: None (occurrence: None)
  Receive Date: 20081208
  Receipt Date: 20081203
  Transmission Date: 20090506
  Serious: Yes (Hospitalization)
  Sender: FDA-Public Use
  Company Number: US-BRISTOL-MYERS SQUIBB COMPANY-13857750

PATIENT
  Age: 54 Year
  Sex: Female
  Weight: 59 kg

DRUGS (10)
  1. PACLITAXEL [Suspect]
     Indication: NON-SMALL CELL LUNG CANCER
     Dosage: CYCLE 4 OF STUDY DRUGS PACLITAXEL WAS GIVEN ON 31-AUG-2007(LAST ADMINISTRATION)
     Route: 042
     Dates: start: 20070601, end: 20070601
  2. CARBOPLATIN [Suspect]
     Indication: NON-SMALL CELL LUNG CANCER
     Dosage: 1 DF=1 AUC.CYCLE 4 OF STUDY DRUGS  CARBOPLATIN WAS GIVEN ON 31-AUG-2007(LAST ADMINISTRATION)
     Route: 042
     Dates: start: 20070601, end: 20070601
  3. CP-751,871 [Suspect]
     Indication: NON-SMALL CELL LUNG CANCER
     Dosage: CYCLE 4 OF STUDY DRUGS CP-75L, 871 WAS GIVEN ON 31-AUG-2007(LAST ADMINISTRATION)
     Route: 042
     Dates: start: 20070601, end: 20070601
  4. CHANTIX [Concomitant]
     Route: 048
     Dates: start: 20070529
  5. LUNESTA [Concomitant]
     Route: 048
     Dates: start: 20070426
  6. METHADONE HCL [Concomitant]
     Route: 048
     Dates: start: 20070529
  7. MORPHINE [Concomitant]
     Dosage: Q4HR
     Route: 048
     Dates: start: 20070528
  8. SENOKOT [Concomitant]
     Dosage: 1 DOSAGE FORM = 4-6TABS (DAILY PRN)
     Route: 048
     Dates: start: 20070528
  9. REMERON [Concomitant]
     Route: 048
     Dates: start: 20070529
  10. CARAFATE [Concomitant]
     Indication: GASTROOESOPHAGEAL REFLUX DISEASE
     Route: 048
     Dates: start: 20070529

REACTIONS (2)
  - ABSCESS INTESTINAL [None]
  - DIVERTICULITIS [None]
